FAERS Safety Report 12866143 (Version 2)
Quarter: 2016Q4

REPORT INFORMATION
  Report Type: Spontaneous
  Country: US (occurrence: US)
  Receive Date: 20161020
  Receipt Date: 20161223
  Transmission Date: 20170207
  Serious: No
  Sender: FDA-Public Use
  Company Number: US-GLAXOSMITHKLINE-US2016GSK152867

PATIENT
  Age: 52 Year
  Sex: Female

DRUGS (3)
  1. TANZEUM [Suspect]
     Active Substance: ALBIGLUTIDE
     Indication: DECREASED APPETITE
  2. TANZEUM [Suspect]
     Active Substance: ALBIGLUTIDE
     Indication: HEPATIC STEATOSIS
     Dosage: 50 MG, WE
  3. TANZEUM [Suspect]
     Active Substance: ALBIGLUTIDE
     Indication: WEIGHT DECREASED
     Dosage: 50 MG, WE
     Dates: start: 201504

REACTIONS (6)
  - Off label use [Unknown]
  - Device deployment issue [Unknown]
  - Product quality issue [Unknown]
  - Weight decreased [Unknown]
  - Product preparation error [Unknown]
  - Device use error [Unknown]

NARRATIVE: CASE EVENT DATE: 201504
